FAERS Safety Report 5803350-7 (Version None)
Quarter: 2008Q3

REPORT INFORMATION
  Report Type: 
  Country: None (occurrence: None)
  Receive Date: 20080708
  Receipt Date: 20080701
  Transmission Date: 20090109
  Serious: Yes (Hospitalization)
  Sender: FDA-Public Use
  Company Number: US-ASTRAZENECA-2006UW03293

PATIENT
  Age: 472 Month
  Sex: Male
  Weight: 122.7 kg

DRUGS (8)
  1. SEROQUEL [Suspect]
     Indication: BIPOLAR DISORDER
     Route: 048
     Dates: start: 20050503, end: 20060101
  2. SEROQUEL [Suspect]
     Indication: SCHIZOPHRENIA
     Route: 048
     Dates: start: 20050503, end: 20060101
  3. SEROQUEL [Suspect]
     Route: 048
     Dates: start: 20060101, end: 20060601
  4. SEROQUEL [Suspect]
     Route: 048
     Dates: start: 20060101, end: 20060601
  5. ABILIFY [Concomitant]
     Dates: start: 20060101
  6. HALDOL [Concomitant]
     Dates: start: 19880101, end: 19980101
  7. RISPERDAL [Concomitant]
     Dates: start: 19930101, end: 20030101
  8. DEPAKOTE [Concomitant]
     Dates: start: 20050101

REACTIONS (3)
  - CARDIAC FIBRILLATION [None]
  - DIABETES MELLITUS [None]
  - WEIGHT INCREASED [None]
